FAERS Safety Report 9667625 (Version 2)
Quarter: 2013Q4

REPORT INFORMATION
  Report Type: Spontaneous
  Country: NL (occurrence: NL)
  Receive Date: 20131104
  Receipt Date: 20131213
  Transmission Date: 20140711
  Serious: Yes (Other)
  Sender: FDA-Public Use
  Company Number: NL-PFIZER INC-2013310881

PATIENT
  Age: 57 Year
  Sex: Male

DRUGS (8)
  1. LATANOPROST PFIZER [Suspect]
     Dosage: 1 GTT, 1X/DAY
  2. ESOMEPRAZOLE [Concomitant]
     Dosage: 20 MG, 1X/DAY
  3. MEDAZINE [Concomitant]
  4. SYMBICORT [Concomitant]
     Dosage: 1 DF, 2X/DAY
  5. ITRACONAZOLE [Concomitant]
  6. DESLORATADINE [Concomitant]
     Dosage: 5 MG, 1X1
  7. AVAMYS [Concomitant]
     Dosage: 1 DF, 1X/DAY
     Route: 045
  8. SPIRIVA [Concomitant]
     Dosage: 2 DF, 1X/DAY

REACTIONS (2)
  - Visual acuity reduced [Unknown]
  - Drug ineffective [Unknown]
